FAERS Safety Report 4307377-6 (Version None)
Quarter: 2004Q1

REPORT INFORMATION
  Report Type: 
  Country: None (occurrence: None)
  Receive Date: 20040226
  Receipt Date: 20040216
  Transmission Date: 20041129
  Serious: Yes (Death)
  Sender: FDA-Public Use
  Company Number: 2003-05-3439

PATIENT
  Age: 19 Year
  Sex: Female
  Weight: 47.1741 kg

DRUGS (5)
  1. ALBUTEROL [Suspect]
     Indication: ASTHMA
     Dosage: 2 PUFFS PRN INHALATION
     Route: 055
     Dates: start: 20010218
  2. SEREVENT [Suspect]
     Indication: ASTHMA
     Dosage: 2 PUFFS BID
     Dates: start: 20010218
  3. FLOVENT [Suspect]
     Indication: ASTHMA
     Dosage: 110 MCG 2 /BID
     Dates: start: 20010218
  4. PENICILLIN G [Suspect]
  5. PREDNISONE [Concomitant]

REACTIONS (13)
  - ASTHMA [None]
  - BRONCHIAL OBSTRUCTION [None]
  - CARDIO-RESPIRATORY ARREST [None]
  - COMA [None]
  - CYANOSIS [None]
  - DYSPNOEA [None]
  - LOSS OF CONSCIOUSNESS [None]
  - PUPIL FIXED [None]
  - RESPIRATORY RATE DECREASED [None]
  - TOXICOLOGIC TEST ABNORMAL [None]
  - VENTILATION/PERFUSION SCAN ABNORMAL [None]
  - VENTRICULAR FIBRILLATION [None]
  - WHEEZING [None]
